FAERS Safety Report 8010127-3 (Version None)
Quarter: 2011Q4

REPORT INFORMATION
  Report Type: 
  Country: None (occurrence: None)
  Receive Date: 20111228
  Receipt Date: 20111215
  Transmission Date: 20120403
  Serious: Yes (Death, Hospitalization)
  Sender: FDA-Public Use
  Company Number: NZ-CELGENEUS-118-20785-11110243

PATIENT
  Sex: Male

DRUGS (12)
  1. SPAN K [Concomitant]
     Route: 065
  2. TRANEXAMIC ACID [Concomitant]
     Route: 065
  3. ZOPICLONE [Concomitant]
     Route: 065
  4. ALLOPURINOL [Concomitant]
     Route: 065
  5. QUINAPRIL [Concomitant]
     Route: 065
  6. BINIFIBRATE [Concomitant]
     Route: 065
  7. METOPROLOL SUCCINATE [Concomitant]
     Route: 065
  8. TERBUTALINE [Concomitant]
     Route: 065
  9. THALIDOMIDE [Suspect]
     Route: 048
  10. OMEPRAZOLE [Concomitant]
     Route: 065
  11. TEGRETOL [Concomitant]
     Route: 065
  12. FUROSEMIDE [Concomitant]
     Route: 065

REACTIONS (1)
  - GASTRIC PERFORATION [None]
